FAERS Safety Report 9641342 (Version 4)
Quarter: 2014Q1

REPORT INFORMATION
  Report Type: Spontaneous
  Country: GB (occurrence: GB)
  Receive Date: 20131023
  Receipt Date: 20140321
  Transmission Date: 20141002
  Serious: Yes (Death, Other)
  Sender: FDA-Public Use
  Company Number: GB-PFIZER INC-2013301406

PATIENT
  Age: 36 Year
  Sex: Male

DRUGS (7)
  1. METHYLPREDNISOLONE SODIUM SUCCINATE [Suspect]
     Indication: LIVER TRANSPLANT REJECTION
     Dosage: 1 G, 1X/DAY
     Route: 042
     Dates: start: 20131007
  2. VALGANCICLOVIR [Concomitant]
     Dosage: UNK
     Route: 048
  3. PROGRAF [Concomitant]
     Dosage: 2 MG, 2X/DAY
     Route: 048
  4. OMEPRAZOLE [Concomitant]
     Dosage: UNK
     Route: 048
  5. FLUCONAZOLE [Concomitant]
     Dosage: 200 MG, UNK
     Route: 048
  6. TAZOCIN [Concomitant]
     Dosage: UNK
     Route: 042
  7. PARACETAMOL [Concomitant]
     Dosage: UNK
     Route: 042

REACTIONS (3)
  - Psychotic disorder [Fatal]
  - Intentional self-injury [Fatal]
  - Aggression [Unknown]
